FAERS Safety Report 14423672 (Version 1)
Quarter: 2018Q1

REPORT INFORMATION
  Report Type: Spontaneous
  Country: US (occurrence: US)
  Receive Date: 20180123
  Receipt Date: 20180123
  Transmission Date: 20180509
  Serious: No
  Sender: FDA-Public Use
  Company Number: US-TEVA-2018-US-844052

PATIENT
  Sex: Female

DRUGS (1)
  1. TRAMADOL. [Suspect]
     Active Substance: TRAMADOL
     Indication: FIBROMYALGIA
     Dosage: 50 MILLIGRAM DAILY; 50MG TWO TABLETS BY MOUTH FOR 1WK AND THEN 1 TABLET BY MOUTH DAILY
     Route: 048
     Dates: start: 2017

REACTIONS (1)
  - Amnesia [Unknown]
